FAERS Safety Report 6504122-0 (Version None)
Quarter: 2009Q4

REPORT INFORMATION
  Report Type: 
  Country: None (occurrence: None)
  Receive Date: 20091217
  Receipt Date: 20091207
  Transmission Date: 20100525
  Serious: Yes (Other)
  Sender: FDA-Public Use
  Company Number: AT-SANOFI-AVENTIS-2009SA007530

PATIENT
  Age: 55 Year

DRUGS (8)
  1. OXALIPLATIN [Suspect]
     Indication: COLON CANCER
     Route: 041
     Dates: start: 20070125, end: 20070125
  2. OXALIPLATIN [Suspect]
     Route: 041
     Dates: start: 20070515, end: 20070515
  3. FLUOROURACIL [Suspect]
     Indication: COLON CANCER
     Route: 041
     Dates: start: 20070125
  4. FLUOROURACIL [Suspect]
     Route: 041
     Dates: start: 20070515
  5. FOLINIC ACID [Suspect]
     Indication: COLON CANCER
     Route: 041
     Dates: start: 20070125, end: 20070125
  6. FOLINIC ACID [Suspect]
     Route: 041
     Dates: start: 20070515, end: 20070515
  7. PANTOPRAZOLE SODIUM [Concomitant]
     Indication: PROPHYLAXIS
     Dates: start: 20070220, end: 20070521
  8. ATENOLOL [Concomitant]
     Indication: HYPERTONIA
     Dates: end: 20070530

REACTIONS (1)
  - ANASTOMOTIC ULCER [None]
